FAERS Safety Report 8251462-3 (Version None)
Quarter: 2012Q1

REPORT INFORMATION
  Report Type: 
  Country: None (occurrence: None)
  Receive Date: 20120322
  Receipt Date: 20120131
  Transmission Date: 20120608
  Serious: Yes (Hospitalization)
  Sender: FDA-Public Use
  Company Number: UTC-015147

PATIENT
  Age: 44 Year
  Sex: Male
  Weight: 111.8 kg

DRUGS (2)
  1. TYVASO [Suspect]
     Indication: COR PULMONALE CHRONIC
     Dosage: 18-54 MICROGRAMS, INHALATION
     Route: 055
     Dates: start: 20110218
  2. COUMADIN [Concomitant]

REACTIONS (1)
  - EPISTAXIS [None]
